FAERS Safety Report 16848500 (Version 1)
Quarter: 2019Q3

REPORT INFORMATION
  Report Type: Spontaneous
  Country: CA (occurrence: CA)
  Receive Date: 20190925
  Receipt Date: 20190925
  Transmission Date: 20191005
  Serious: Yes (Hospitalization)
  Sender: FDA-Public Use
  Company Number: CA-TEVA-2019-CA-1113239

PATIENT
  Age: 38 Year
  Sex: Male

DRUGS (4)
  1. AMMONIUM CHLORIDE\DIPHENHYDRAMINE HYDROCHLORIDE\MENTHOL\SODIUM CITRATE [Interacting]
     Active Substance: AMMONIUM CHLORIDE\DIPHENHYDRAMINE HYDROCHLORIDE\MENTHOL\SODIUM CITRATE
     Indication: COUGH
     Route: 065
  2. DEXTROMETHORPHAN W/PARACETAMOL W/PROMETHAZINE [Suspect]
     Active Substance: ACETAMINOPHEN\DEXTROMETHORPHAN\PROMETHAZINE
  3. CHLOROFORM [Suspect]
     Active Substance: CHLOROFORM
  4. VENLAFAXINE HYDROCHLORIDE. [Suspect]
     Active Substance: VENLAFAXINE HYDROCHLORIDE
     Indication: PRODUCT USED FOR UNKNOWN INDICATION
     Dosage: 112.5 MILLIGRAM DAILY;
     Route: 048

REACTIONS (5)
  - Feeling abnormal [Recovered/Resolved]
  - Psychomotor hyperactivity [Recovered/Resolved]
  - Drug interaction [Recovered/Resolved]
  - Disorientation [Recovered/Resolved]
  - Serotonin syndrome [Recovered/Resolved]
